FAERS Safety Report 5796777-3 (Version None)
Quarter: 2008Q3

REPORT INFORMATION
  Report Type: 
  Country: None (occurrence: None)
  Receive Date: 20080701
  Receipt Date: 20080623
  Transmission Date: 20090109
  Serious: No
  Sender: FDA-Public Use
  Company Number: US-ASTRAZENECA-2006UW08769

PATIENT
  Age: 538 Month
  Sex: Female
  Weight: 78.2 kg

DRUGS (9)
  1. SEROQUEL [Suspect]
     Indication: ANXIETY
     Route: 048
     Dates: start: 20000101
  2. SEROQUEL [Suspect]
     Indication: DEPRESSION
     Route: 048
     Dates: start: 20000101
  3. SEROQUEL [Suspect]
     Indication: BIPOLAR DISORDER
     Route: 048
     Dates: start: 20000101
  4. SEROQUEL [Suspect]
     Route: 048
     Dates: start: 20000101
  5. SEROQUEL [Suspect]
     Route: 048
     Dates: start: 20000101
  6. SEROQUEL [Suspect]
     Route: 048
     Dates: start: 20000101
  7. THORAZINE [Concomitant]
     Dates: start: 20030101, end: 20040101
  8. RISPERIDONE [Concomitant]
     Dates: start: 20000101, end: 20050401
  9. RISPERIDONE [Concomitant]
     Dates: start: 20070501

REACTIONS (3)
  - DIABETES MELLITUS [None]
  - LIVER DISORDER [None]
  - ROAD TRAFFIC ACCIDENT [None]
